FAERS Safety Report 5930949 (Version 3)
Quarter: 2017Q1

REPORT INFORMATION
  Report Type: Spontaneous
  Country: US (occurrence: US)
  Receive Date: 20051129
  Receipt Date: 20170316
  Transmission Date: 20170429
  Serious: No
  Sender: FDA-Public Use
  Company Number: US-GLAXOSMITHKLINE-A0555852A

PATIENT
  Age: 59 Year
  Sex: Female

DRUGS (6)
  1. WELLBUTRIN SR [Suspect]
     Active Substance: BUPROPION HYDROCHLORIDE
     Indication: ANXIETY
     Dosage: 150 MG, UNK
     Route: 048
     Dates: start: 2000
  2. MENEST [Concomitant]
     Active Substance: ESTROGENS, ESTERIFIED
  3. BUPROPION SR PROLONGED-RELEASE TABLET [Suspect]
     Active Substance: BUPROPION
     Indication: ANXIETY
     Dosage: 300 MG, QD
     Route: 048
  4. TRAZODONE [Concomitant]
     Active Substance: TRAZODONE HYDROCHLORIDE
  5. VITAMINS [Concomitant]
     Active Substance: VITAMINS
  6. WELLBUTRIN SR [Suspect]
     Active Substance: BUPROPION HYDROCHLORIDE
     Dosage: 300 MG, QD
     Route: 048
     Dates: start: 2000

REACTIONS (14)
  - Abnormal sensation in eye [Unknown]
  - Thirst [Unknown]
  - Dyspnoea [Unknown]
  - Inappropriate schedule of drug administration [Unknown]
  - Dry mouth [Unknown]
  - Sensory disturbance [Unknown]
  - Product use issue [Unknown]
  - Product quality issue [Unknown]
  - Loss of libido [Not Recovered/Not Resolved]
  - Dyspnoea [Not Recovered/Not Resolved]
  - Amnesia [Unknown]
  - Arthralgia [Unknown]
  - Restlessness [Unknown]
  - Dizziness [Unknown]

NARRATIVE: CASE EVENT DATE: 20050421
